FAERS Safety Report 7544560-0 (Version None)
Quarter: 2011Q2

REPORT INFORMATION
  Report Type: 
  Country: None (occurrence: None)
  Receive Date: 20110613
  Receipt Date: 20110608
  Transmission Date: 20111010
  Serious: Yes (Hospitalization)
  Sender: FDA-Public Use
  Company Number: ES-BRISTOL-MYERS SQUIBB COMPANY-15812563

PATIENT
  Age: 65 Year
  Sex: Female

DRUGS (2)
  1. CARBOPLATIN [Suspect]
     Indication: LUNG CANCER METASTATIC
  2. PEMETREXED DISODIUM [Suspect]
     Indication: LUNG CANCER METASTATIC

REACTIONS (2)
  - PNEUMOPERITONEUM [None]
  - EMPHYSEMATOUS CYSTITIS [None]
